FAERS Safety Report 20990360 (Version 3)
Quarter: 2022Q3

REPORT INFORMATION
  Report Type: Spontaneous
  Country: US (occurrence: US)
  Receive Date: 20220622
  Receipt Date: 20220826
  Transmission Date: 20221027
  Serious: Yes (Hospitalization)
  Sender: FDA-Public Use
  Company Number: US-BIOGEN-2022BI01133379

PATIENT
  Age: 74 Year
  Sex: Female
  Weight: 51 kg

DRUGS (145)
  1. AVONEX [Suspect]
     Active Substance: INTERFERON BETA-1A
     Indication: Relapsing-remitting multiple sclerosis
     Route: 050
     Dates: start: 19990501, end: 20220301
  2. AVONEX [Suspect]
     Active Substance: INTERFERON BETA-1A
     Route: 050
     Dates: start: 2020
  3. AVONEX [Suspect]
     Active Substance: INTERFERON BETA-1A
     Route: 050
  4. AVONEX [Suspect]
     Active Substance: INTERFERON BETA-1A
  5. AVONEX [Suspect]
     Active Substance: INTERFERON BETA-1A
  6. AVONEX [Suspect]
     Active Substance: INTERFERON BETA-1A
  7. AVONEX [Suspect]
     Active Substance: INTERFERON BETA-1A
  8. AVONEX [Suspect]
     Active Substance: INTERFERON BETA-1A
  9. AVONEX [Suspect]
     Active Substance: INTERFERON BETA-1A
  10. AVONEX [Suspect]
     Active Substance: INTERFERON BETA-1A
  11. AVONEX [Suspect]
     Active Substance: INTERFERON BETA-1A
  12. AVONEX [Suspect]
     Active Substance: INTERFERON BETA-1A
  13. AVONEX [Suspect]
     Active Substance: INTERFERON BETA-1A
  14. AVONEX PEN [Suspect]
     Active Substance: INTERFERON BETA-1A
     Indication: Relapsing-remitting multiple sclerosis
     Dosage: AVONEX PEN 30 MICROGRAMS / 0.5ML INJECTION.?INJECT 0.5ML INTO THE MUSCLE EVERY 7 DAYS
     Route: 050
  15. AVONEX PEN [Suspect]
     Active Substance: INTERFERON BETA-1A
  16. AVONEX PEN [Suspect]
     Active Substance: INTERFERON BETA-1A
  17. AVONEX PEN [Suspect]
     Active Substance: INTERFERON BETA-1A
  18. PROTONIX [Concomitant]
     Active Substance: PANTOPRAZOLE SODIUM
     Indication: Product used for unknown indication
     Route: 050
  19. ULTRAM [Concomitant]
     Active Substance: TRAMADOL HYDROCHLORIDE
     Indication: Product used for unknown indication
     Dosage: TAKEN EVERY 6 HOURS AS NEEDED FOR PAIN
     Route: 050
  20. ULTRAM [Concomitant]
     Active Substance: TRAMADOL HYDROCHLORIDE
     Route: 050
  21. RITALIN [Concomitant]
     Active Substance: METHYLPHENIDATE HYDROCHLORIDE
     Indication: Somnolence
     Route: 050
  22. RITALIN [Concomitant]
     Active Substance: METHYLPHENIDATE HYDROCHLORIDE
     Route: 050
  23. SENNA [Concomitant]
     Active Substance: SENNA LEAF\SENNOSIDES\SENNOSIDES A AND B
     Indication: Product used for unknown indication
     Route: 050
  24. SENNA [Concomitant]
     Active Substance: SENNA LEAF\SENNOSIDES\SENNOSIDES A AND B
     Route: 050
  25. SENNA [Concomitant]
     Active Substance: SENNA LEAF\SENNOSIDES\SENNOSIDES A AND B
     Route: 050
  26. SENNA [Concomitant]
     Active Substance: SENNA LEAF\SENNOSIDES\SENNOSIDES A AND B
     Route: 050
  27. FOSAMAX [Concomitant]
     Active Substance: ALENDRONATE SODIUM
     Indication: Product used for unknown indication
     Route: 050
  28. FOSAMAX [Concomitant]
     Active Substance: ALENDRONATE SODIUM
     Route: 050
  29. FOSAMAX [Concomitant]
     Active Substance: ALENDRONATE SODIUM
     Route: 050
  30. FOSAMAX [Concomitant]
     Active Substance: ALENDRONATE SODIUM
     Route: 050
  31. FOSAMAX [Concomitant]
     Active Substance: ALENDRONATE SODIUM
     Route: 050
  32. FOSAMAX [Concomitant]
     Active Substance: ALENDRONATE SODIUM
     Dosage: 2% OINTMENT
     Route: 050
  33. BACTROBAN [Concomitant]
     Active Substance: MUPIROCIN\MUPIROCIN CALCIUM
     Indication: Product used for unknown indication
     Dosage: 2% OINTMENT
     Route: 050
  34. BACTROBAN [Concomitant]
     Active Substance: MUPIROCIN\MUPIROCIN CALCIUM
     Route: 050
  35. BACTROBAN [Concomitant]
     Active Substance: MUPIROCIN\MUPIROCIN CALCIUM
     Route: 050
  36. BACTROBAN [Concomitant]
     Active Substance: MUPIROCIN\MUPIROCIN CALCIUM
     Route: 050
  37. BACTROBAN [Concomitant]
     Active Substance: MUPIROCIN\MUPIROCIN CALCIUM
     Route: 050
  38. BACTROBAN [Concomitant]
     Active Substance: MUPIROCIN\MUPIROCIN CALCIUM
     Dosage: 2% OINTMENT
     Route: 050
  39. BACTROBAN [Concomitant]
     Active Substance: MUPIROCIN\MUPIROCIN CALCIUM
     Dosage: 2% OINTMENT
     Route: 050
  40. DESYREL [Concomitant]
     Active Substance: TRAZODONE HYDROCHLORIDE
     Indication: Product used for unknown indication
     Dosage: TAKEN NIGHTLY
     Route: 050
  41. DESYREL [Concomitant]
     Active Substance: TRAZODONE HYDROCHLORIDE
     Route: 050
  42. DESYREL [Concomitant]
     Active Substance: TRAZODONE HYDROCHLORIDE
     Route: 050
  43. DESYREL [Concomitant]
     Active Substance: TRAZODONE HYDROCHLORIDE
     Route: 050
  44. DESYREL [Concomitant]
     Active Substance: TRAZODONE HYDROCHLORIDE
     Route: 050
  45. DESYREL [Concomitant]
     Active Substance: TRAZODONE HYDROCHLORIDE
     Dosage: 2% OINTMENT
     Route: 050
  46. DESYREL [Concomitant]
     Active Substance: TRAZODONE HYDROCHLORIDE
     Dosage: 2% OINTMENT
     Route: 050
  47. SYMMETREL (AMANTADINE) [Concomitant]
     Indication: Product used for unknown indication
     Route: 050
  48. SYMMETREL (AMANTADINE) [Concomitant]
     Route: 050
  49. SYMMETREL (AMANTADINE) [Concomitant]
     Route: 050
  50. SYMMETREL (AMANTADINE) [Concomitant]
     Route: 050
  51. SYMMETREL (AMANTADINE) [Concomitant]
     Route: 050
  52. SYMMETREL (AMANTADINE) [Concomitant]
     Dosage: 2% OINTMENT
     Route: 050
  53. SYMMETREL (AMANTADINE) [Concomitant]
     Dosage: 2% OINTMENT
     Route: 050
  54. MYSOLINE [Concomitant]
     Active Substance: PRIMIDONE
     Indication: Tremor
     Dosage: MAY TAKE ADDITIONAL 1 TABLET TWICE DAILY AS NEEDED (MAXIMUM OF 8 TABLETS PER DAY)
     Route: 050
  55. MYSOLINE [Concomitant]
     Active Substance: PRIMIDONE
     Route: 050
  56. MYSOLINE [Concomitant]
     Active Substance: PRIMIDONE
     Route: 050
  57. MYSOLINE [Concomitant]
     Active Substance: PRIMIDONE
     Route: 050
  58. MYSOLINE [Concomitant]
     Active Substance: PRIMIDONE
     Route: 050
  59. MYSOLINE [Concomitant]
     Active Substance: PRIMIDONE
     Dosage: 2% OINTMENT
     Route: 050
  60. MYSOLINE [Concomitant]
     Active Substance: PRIMIDONE
     Dosage: 2% OINTMENT
     Route: 050
  61. REGLAN [Concomitant]
     Active Substance: METOCLOPRAMIDE HYDROCHLORIDE
     Indication: Product used for unknown indication
     Route: 050
  62. REGLAN [Concomitant]
     Active Substance: METOCLOPRAMIDE HYDROCHLORIDE
     Route: 050
  63. REGLAN [Concomitant]
     Active Substance: METOCLOPRAMIDE HYDROCHLORIDE
     Route: 050
  64. REGLAN [Concomitant]
     Active Substance: METOCLOPRAMIDE HYDROCHLORIDE
     Route: 050
  65. REGLAN [Concomitant]
     Active Substance: METOCLOPRAMIDE HYDROCHLORIDE
     Route: 050
  66. REGLAN [Concomitant]
     Active Substance: METOCLOPRAMIDE HYDROCHLORIDE
     Dosage: 2% OINTMENT
     Route: 050
  67. REGLAN [Concomitant]
     Active Substance: METOCLOPRAMIDE HYDROCHLORIDE
     Dosage: 2% OINTMENT
     Route: 050
  68. CELEXA (CITALOPRAM) [Concomitant]
     Indication: Product used for unknown indication
     Route: 050
  69. CELEXA (CITALOPRAM) [Concomitant]
     Route: 050
  70. CELEXA (CITALOPRAM) [Concomitant]
     Route: 050
  71. CELEXA (CITALOPRAM) [Concomitant]
     Route: 050
  72. CELEXA (CITALOPRAM) [Concomitant]
     Route: 050
  73. CELEXA (CITALOPRAM) [Concomitant]
     Dosage: 2% OINTMENT
     Route: 050
  74. CELEXA (CITALOPRAM) [Concomitant]
     Dosage: 2% OINTMENT
     Route: 050
  75. PROAMATINE (MIDORINE) [Concomitant]
     Indication: Orthostatic hypotension
     Route: 050
  76. PROAMATINE (MIDORINE) [Concomitant]
     Route: 050
  77. PROAMATINE (MIDORINE) [Concomitant]
     Route: 050
  78. PROAMATINE (MIDORINE) [Concomitant]
     Route: 050
  79. PROAMATINE (MIDORINE) [Concomitant]
     Route: 050
  80. PROAMATINE (MIDORINE) [Concomitant]
     Dosage: 2% OINTMENT
     Route: 050
  81. PROAMATINE (MIDORINE) [Concomitant]
     Dosage: 2% OINTMENT
     Route: 050
  82. ACETAMINOPHEN [Concomitant]
     Active Substance: ACETAMINOPHEN
     Indication: Pain
     Dosage: TAKEN EVERY 6 HOURS AS NEEDED FOR PAIN.
     Route: 050
  83. ACETAMINOPHEN [Concomitant]
     Active Substance: ACETAMINOPHEN
     Route: 050
  84. ACETAMINOPHEN [Concomitant]
     Active Substance: ACETAMINOPHEN
     Route: 050
  85. ACETAMINOPHEN [Concomitant]
     Active Substance: ACETAMINOPHEN
     Route: 050
  86. ACETAMINOPHEN [Concomitant]
     Active Substance: ACETAMINOPHEN
     Route: 050
  87. ACETAMINOPHEN [Concomitant]
     Active Substance: ACETAMINOPHEN
     Dosage: 2% OINTMENT
     Route: 050
  88. ACETAMINOPHEN [Concomitant]
     Active Substance: ACETAMINOPHEN
     Dosage: 2% OINTMENT
     Route: 050
  89. CITRACAL (CALCIUM + MAGNESIUM + VITAMIN D) [Concomitant]
     Indication: Product used for unknown indication
     Route: 050
  90. CITRACAL (CALCIUM + MAGNESIUM + VITAMIN D) [Concomitant]
     Route: 050
  91. CITRACAL (CALCIUM + MAGNESIUM + VITAMIN D) [Concomitant]
     Route: 050
  92. CITRACAL (CALCIUM + MAGNESIUM + VITAMIN D) [Concomitant]
     Route: 050
  93. CITRACAL (CALCIUM + MAGNESIUM + VITAMIN D) [Concomitant]
     Route: 050
  94. CITRACAL (CALCIUM + MAGNESIUM + VITAMIN D) [Concomitant]
     Dosage: 2% OINTMENT
     Route: 050
  95. CITRACAL (CALCIUM + MAGNESIUM + VITAMIN D) [Concomitant]
     Dosage: 2% OINTMENT
     Route: 050
  96. VITAMIN C [Concomitant]
     Active Substance: ASCORBIC ACID
     Indication: Product used for unknown indication
     Route: 050
  97. VITAMIN C [Concomitant]
     Active Substance: ASCORBIC ACID
     Route: 050
  98. VITAMIN C [Concomitant]
     Active Substance: ASCORBIC ACID
     Route: 050
  99. VITAMIN C [Concomitant]
     Active Substance: ASCORBIC ACID
     Route: 050
  100. VITAMIN C [Concomitant]
     Active Substance: ASCORBIC ACID
     Route: 050
  101. VITAMIN C [Concomitant]
     Active Substance: ASCORBIC ACID
     Dosage: 2% OINTMENT
     Route: 050
  102. VITAMIN C [Concomitant]
     Active Substance: ASCORBIC ACID
     Dosage: 2% OINTMENT
     Route: 050
  103. VITAMIN D3 [Concomitant]
     Active Substance: CHOLECALCIFEROL
     Indication: Product used for unknown indication
     Route: 050
  104. VITAMIN D3 [Concomitant]
     Active Substance: CHOLECALCIFEROL
     Route: 050
  105. VITAMIN D3 [Concomitant]
     Active Substance: CHOLECALCIFEROL
     Route: 050
  106. VITAMIN D3 [Concomitant]
     Active Substance: CHOLECALCIFEROL
     Route: 050
  107. VITAMIN D3 [Concomitant]
     Active Substance: CHOLECALCIFEROL
     Route: 050
  108. VITAMIN D3 [Concomitant]
     Active Substance: CHOLECALCIFEROL
     Dosage: 2% OINTMENT
     Route: 050
  109. VITAMIN D3 [Concomitant]
     Active Substance: CHOLECALCIFEROL
     Dosage: 2% OINTMENT
     Route: 050
  110. VITAMIN E [Concomitant]
     Active Substance: .ALPHA.-TOCOPHEROL
     Indication: Product used for unknown indication
     Route: 050
  111. VITAMIN E [Concomitant]
     Active Substance: .ALPHA.-TOCOPHEROL
     Route: 050
  112. VITAMIN E [Concomitant]
     Active Substance: .ALPHA.-TOCOPHEROL
     Route: 050
  113. VITAMIN E [Concomitant]
     Active Substance: .ALPHA.-TOCOPHEROL
     Route: 050
  114. VITAMIN E [Concomitant]
     Active Substance: .ALPHA.-TOCOPHEROL
     Route: 050
  115. VITAMIN E [Concomitant]
     Active Substance: .ALPHA.-TOCOPHEROL
     Dosage: 2% OINTMENT
     Route: 050
  116. VITAMIN E [Concomitant]
     Active Substance: .ALPHA.-TOCOPHEROL
     Dosage: 2% OINTMENT
     Route: 050
  117. LUTEIN [Concomitant]
     Active Substance: LUTEIN
     Indication: Product used for unknown indication
     Route: 050
  118. LUTEIN [Concomitant]
     Active Substance: LUTEIN
     Route: 050
  119. LUTEIN [Concomitant]
     Active Substance: LUTEIN
     Route: 050
  120. LUTEIN [Concomitant]
     Active Substance: LUTEIN
     Route: 050
  121. LUTEIN [Concomitant]
     Active Substance: LUTEIN
     Route: 050
  122. LUTEIN [Concomitant]
     Active Substance: LUTEIN
     Dosage: 2% OINTMENT
     Route: 050
  123. LUTEIN [Concomitant]
     Active Substance: LUTEIN
     Dosage: 2% OINTMENT
     Route: 050
  124. CVS VITAMIN B6 (PYRIDOXINE) [Concomitant]
     Indication: Product used for unknown indication
     Route: 050
  125. CVS VITAMIN B6 (PYRIDOXINE) [Concomitant]
     Route: 050
  126. CVS VITAMIN B6 (PYRIDOXINE) [Concomitant]
     Route: 050
  127. CVS VITAMIN B6 (PYRIDOXINE) [Concomitant]
     Route: 050
  128. CVS VITAMIN B6 (PYRIDOXINE) [Concomitant]
     Route: 050
  129. CVS VITAMIN B6 (PYRIDOXINE) [Concomitant]
     Dosage: 2% OINTMENT
     Route: 050
  130. CVS VITAMIN B6 (PYRIDOXINE) [Concomitant]
     Dosage: 2% OINTMENT
     Route: 050
  131. LOVAZA (OMEGA 3 ACID ETHYL ESTERS) [Concomitant]
     Indication: Product used for unknown indication
     Route: 050
  132. LOVAZA (OMEGA 3 ACID ETHYL ESTERS) [Concomitant]
     Route: 050
  133. LOVAZA (OMEGA 3 ACID ETHYL ESTERS) [Concomitant]
     Route: 050
  134. LOVAZA (OMEGA 3 ACID ETHYL ESTERS) [Concomitant]
     Route: 050
  135. LOVAZA (OMEGA 3 ACID ETHYL ESTERS) [Concomitant]
     Route: 050
  136. LOVAZA (OMEGA 3 ACID ETHYL ESTERS) [Concomitant]
     Dosage: 2% OINTMENT
     Route: 050
  137. LOVAZA (OMEGA 3 ACID ETHYL ESTERS) [Concomitant]
     Dosage: 2% OINTMENT
     Route: 050
  138. ECOTRIN LOW STRENGTH (ASPIRIN) [Concomitant]
     Indication: Product used for unknown indication
     Route: 050
  139. ECOTRIN LOW STRENGTH (ASPIRIN) [Concomitant]
     Route: 050
  140. ECOTRIN LOW STRENGTH (ASPIRIN) [Concomitant]
     Route: 050
  141. ECOTRIN LOW STRENGTH (ASPIRIN) [Concomitant]
     Route: 050
  142. ECOTRIN LOW STRENGTH (ASPIRIN) [Concomitant]
     Route: 050
  143. ECOTRIN LOW STRENGTH (ASPIRIN) [Concomitant]
     Dosage: 2% OINTMENT
     Route: 050
  144. ECOTRIN LOW STRENGTH (ASPIRIN) [Concomitant]
     Dosage: 2% OINTMENT
     Route: 050
  145. PRILOSEC [Concomitant]
     Active Substance: OMEPRAZOLE MAGNESIUM
     Indication: Product used for unknown indication
     Route: 050

REACTIONS (2)
  - Foot fracture [Recovered/Resolved]
  - Fall [Recovered/Resolved]

NARRATIVE: CASE EVENT DATE: 20220401
